FAERS Safety Report 25389408 (Version 1)
Quarter: 2025Q2

REPORT INFORMATION
  Report Type: Spontaneous
  Country: US (occurrence: US)
  Receive Date: 20250603
  Receipt Date: 20250603
  Transmission Date: 20250716
  Serious: Yes (Other)
  Sender: TERSERA THERAPEUTICS
  Company Number: US-TERSERA THERAPEUTICS LLC-2025TRS001986

PATIENT

DRUGS (6)
  1. PRIALT [Suspect]
     Active Substance: ZICONOTIDE ACETATE
     Indication: Neuropathy peripheral
     Route: 037
  2. PRIALT [Suspect]
     Active Substance: ZICONOTIDE ACETATE
     Route: 037
     Dates: start: 20241107, end: 20250115
  3. MORPHINE [Suspect]
     Active Substance: MORPHINE
     Indication: Neuropathy peripheral
     Route: 037
  4. MORPHINE [Suspect]
     Active Substance: MORPHINE
     Route: 037
     Dates: start: 20241107
  5. MORPHINE [Suspect]
     Active Substance: MORPHINE
     Route: 037
     Dates: start: 20250115
  6. MORPHINE [Suspect]
     Active Substance: MORPHINE
     Route: 037
     Dates: start: 20250307

REACTIONS (4)
  - Malignant neoplasm progression [Not Recovered/Not Resolved]
  - Oedema [Not Recovered/Not Resolved]
  - Product use issue [Unknown]
  - Off label use [Unknown]
